FAERS Safety Report 9953870 (Version 1)
Quarter: 2014Q1

REPORT INFORMATION
  Report Type: Spontaneous
  Country: US (occurrence: US)
  Receive Date: 20140304
  Receipt Date: 20140304
  Transmission Date: 20141002
  Serious: No
  Sender: FDA-Public Use
  Company Number: US-AMGEN-USASP2013083530

PATIENT
  Age: 56 Year
  Sex: Female
  Weight: 65.76 kg

DRUGS (7)
  1. ENBREL [Suspect]
     Indication: PRODUCT USED FOR UNKNOWN INDICATION
     Dosage: 50 MG, QWK
     Route: 058
  2. TRAZODONE [Concomitant]
     Dosage: 50 MG, UNK
  3. MIRAPEX [Concomitant]
     Dosage: 3 MG, UNK
  4. ZOLOFT [Concomitant]
     Dosage: 50 MG, UNK
  5. PREDNISONE [Concomitant]
     Dosage: 5 MG, UNK
  6. MULTI [Concomitant]
     Dosage: UNK
  7. CALCIUM [Concomitant]
     Dosage: 500 UNK, UNK

REACTIONS (1)
  - Injection site pain [Unknown]
